FAERS Safety Report 17213848 (Version 2)
Quarter: 2020Q2

REPORT INFORMATION
  Report Type: Report from Study
  Country: JP (occurrence: JP)
  Receive Date: 20191230
  Receipt Date: 20200416
  Transmission Date: 20200713
  Serious: Yes (Hospitalization)
  Sender: FDA-Public Use
  Company Number: JP-VIFOR (INTERNATIONAL) INC.-VIT-2019-17461

PATIENT
  Age: 69 Year
  Sex: Male
  Weight: 78.5 kg

DRUGS (14)
  1. VELPHORO [Suspect]
     Active Substance: SUCROFERRIC OXYHYDROXIDE
     Indication: HYPERPHOSPHATAEMIA
     Route: 048
     Dates: start: 20160609, end: 20160622
  2. REZALTAS [Concomitant]
     Active Substance: AZELNIDIPINE\OLMESARTAN MEDOXOMIL
     Route: 048
  3. PLAVIX [Concomitant]
     Active Substance: CLOPIDOGREL BISULFATE
     Route: 048
  4. ZESULAN [Concomitant]
     Active Substance: MEQUITAZINE
     Route: 048
  5. EPOGIN [Concomitant]
     Active Substance: ERYTHROPOIETIN
     Dates: start: 20170824, end: 20171212
  6. BASEN [Concomitant]
     Route: 048
  7. OLMETEC [Concomitant]
     Active Substance: OLMESARTAN MEDOXOMIL
     Route: 048
  8. EPOGIN [Concomitant]
     Active Substance: ERYTHROPOIETIN
     Dates: start: 20170420, end: 20170822
  9. VELPHORO [Suspect]
     Active Substance: SUCROFERRIC OXYHYDROXIDE
     Route: 048
     Dates: start: 20160623
  10. EQUA [Concomitant]
     Active Substance: VILDAGLIPTIN
     Route: 048
  11. EPOGIN [Concomitant]
     Active Substance: ERYTHROPOIETIN
     Dates: start: 20170318
  12. EPOGIN [Concomitant]
     Active Substance: ERYTHROPOIETIN
     Dates: start: 20171214
  13. ADALAT CC [Concomitant]
     Active Substance: NIFEDIPINE
     Route: 048
     Dates: start: 20161222
  14. CALTAN [Concomitant]
     Active Substance: CALCIUM CARBONATE
     Indication: HYPERPHOSPHATAEMIA
     Route: 048

REACTIONS (1)
  - Oesophageal carcinoma [Recovering/Resolving]

NARRATIVE: CASE EVENT DATE: 20170513
